FAERS Safety Report 13459616 (Version 1)
Quarter: 2017Q2

REPORT INFORMATION
  Report Type: Spontaneous
  Country: US (occurrence: US)
  Receive Date: 20170419
  Receipt Date: 20170419
  Transmission Date: 20170830
  Serious: Yes (Other)
  Sender: FDA-Public Use
  Company Number: PHHY2017US054514

PATIENT
  Age: 52 Year
  Sex: Male

DRUGS (6)
  1. HALOPERIDOL. [Suspect]
     Active Substance: HALOPERIDOL
     Indication: AGITATION
     Dosage: 10 MG,
     Route: 042
  2. DIPHENHYDRAMINE. [Suspect]
     Active Substance: DIPHENHYDRAMINE
     Indication: AGITATION
     Dosage: 25 MG,
     Route: 065
  3. LORAZEPAM. [Suspect]
     Active Substance: LORAZEPAM
     Indication: AGITATION
     Dosage: 4 MG,
     Route: 042
  4. OLANZAPINE. [Suspect]
     Active Substance: OLANZAPINE
     Dosage: 10 MG,
     Route: 030
  5. OLANZAPINE. [Suspect]
     Active Substance: OLANZAPINE
     Indication: AGITATION
     Dosage: 5 MG,
     Route: 042
  6. KETAMINE [Suspect]
     Active Substance: KETAMINE
     Indication: AGITATION
     Dosage: 50 MG,
     Route: 042

REACTIONS (2)
  - Drug ineffective [Unknown]
  - Respiratory depression [Unknown]
